FAERS Safety Report 17136172 (Version 3)
Quarter: 2020Q1

REPORT INFORMATION
  Report Type: Report from Study
  Country: BE (occurrence: BE)
  Receive Date: 20191210
  Receipt Date: 20200213
  Transmission Date: 20200409
  Serious: Yes (Hospitalization)
  Sender: FDA-Public Use
  Company Number: BE-PFIZER INC-2019531663

PATIENT
  Age: 76 Year
  Sex: Male
  Weight: 95 kg

DRUGS (6)
  1. PACLITAXEL. [Suspect]
     Active Substance: PACLITAXEL
     Indication: BLADDER TRANSITIONAL CELL CARCINOMA
     Dosage: 168 MG, CYCLIC (1 CYCLE)
     Route: 042
     Dates: start: 20191125
  2. MSB0010718C [Suspect]
     Active Substance: AVELUMAB
     Dosage: 950 MG, CYCLIC
     Route: 042
  3. MSB0010718C [Suspect]
     Active Substance: AVELUMAB
     Indication: BLADDER TRANSITIONAL CELL CARCINOMA
     Dosage: 950 MG, CYCLIC
     Route: 042
     Dates: start: 20191125
  4. MSB0010718C [Suspect]
     Active Substance: AVELUMAB
     Dosage: 950 MG, CYCLIC
     Route: 042
  5. GEMCITABINE HYDROCHLORIDE. [Suspect]
     Active Substance: GEMCITABINE HYDROCHLORIDE
     Indication: BLADDER TRANSITIONAL CELL CARCINOMA
     Dosage: 2091 MG, CYCLIC
     Route: 042
     Dates: start: 20191125
  6. MSB0010718C [Suspect]
     Active Substance: AVELUMAB
     Dosage: 950 MG, CYCLIC
     Route: 042

REACTIONS (1)
  - Urinary tract infection [Recovered/Resolved]

NARRATIVE: CASE EVENT DATE: 20191127
